FAERS Safety Report 8615067-4 (Version None)
Quarter: 2012Q3

REPORT INFORMATION
  Report Type: 
  Country: None (occurrence: None)
  Receive Date: 20120823
  Receipt Date: 20120822
  Transmission Date: 20120928
  Serious: Yes (Hospitalization)
  Sender: FDA-Public Use
  Company Number: PHHO2009US10139

PATIENT
  Sex: Male

DRUGS (2)
  1. ZORTRESS [Suspect]
     Indication: HEART TRANSPLANT
     Dosage: UNK
  2. CYCLOSPORINE [Suspect]
     Indication: HEART TRANSPLANT
     Dosage: UNK

REACTIONS (4)
  - TOXICITY TO VARIOUS AGENTS [None]
  - DISEASE PROGRESSION [None]
  - NEPHROPATHY TOXIC [None]
  - RENAL FAILURE CHRONIC [None]
